FAERS Safety Report 12626539 (Version 1)
Quarter: 2016Q3

REPORT INFORMATION
  Report Type: Report from Study
  Country: US (occurrence: US)
  Receive Date: 20160805
  Receipt Date: 20160805
  Transmission Date: 20161109
  Serious: No
  Sender: FDA-Public Use
  Company Number: US-009507513-1607USA004171

PATIENT
  Sex: Male
  Weight: 61.22 kg

DRUGS (8)
  1. OXYCODONE [Concomitant]
     Active Substance: OXYCODONE
  2. SENNA [Concomitant]
     Active Substance: SENNA LEAF\SENNOSIDES\SENNOSIDES A AND B
  3. PROVENTIL [Suspect]
     Active Substance: ALBUTEROL
     Dosage: UNK
     Route: 055
  4. REMERON [Concomitant]
     Active Substance: MIRTAZAPINE
  5. CITALOPRAM [Concomitant]
     Active Substance: CITALOPRAM HYDROBROMIDE
  6. PROCHLORPERAZINE. [Concomitant]
     Active Substance: PROCHLORPERAZINE
  7. DRONABINOL. [Concomitant]
     Active Substance: DRONABINOL
  8. ZOFRAN [Concomitant]
     Active Substance: ONDANSETRON HYDROCHLORIDE

REACTIONS (2)
  - Hiccups [Unknown]
  - Drug hypersensitivity [Unknown]
